FAERS Safety Report 10670696 (Version 1)
Quarter: 2014Q4

REPORT INFORMATION
  Report Type: Spontaneous
  Country: US (occurrence: US)
  Receive Date: 20141223
  Receipt Date: 20141223
  Transmission Date: 20150529
  Serious: No
  Sender: FDA-Public Use
  Company Number: US-PFIZER INC-2014349389

PATIENT
  Age: 13 Year
  Sex: Male

DRUGS (1)
  1. GENOTROPIN MQ [Suspect]
     Active Substance: SOMATROPIN
     Indication: DWARFISM
     Dosage: 1.8 MG, DAILY
     Route: 058

REACTIONS (5)
  - Pyrexia [Unknown]
  - Malaise [Recovered/Resolved]
  - Injection site injury [Unknown]
  - Arthralgia [Recovered/Resolved]
  - Injection site haemorrhage [Unknown]
